FAERS Safety Report 20394143 (Version 4)
Quarter: 2022Q3

REPORT INFORMATION
  Report Type: Report from Study
  Country: US (occurrence: US)
  Receive Date: 20220129
  Receipt Date: 20220909
  Transmission Date: 20221027
  Serious: Yes (Other)
  Sender: FDA-Public Use
  Company Number: US-NOVARTISTESTPH-NVSC2022US018662

PATIENT
  Sex: Female

DRUGS (1)
  1. TABRECTA [Suspect]
     Active Substance: CAPMATINIB
     Indication: Lung carcinoma cell type unspecified stage 0
     Dosage: 200 MG, BID
     Route: 048

REACTIONS (10)
  - Pulmonary embolism [Unknown]
  - Adverse drug reaction [Unknown]
  - Swelling [Unknown]
  - Weight increased [Unknown]
  - Fluid retention [Unknown]
  - Orthostatic hypotension [Unknown]
  - Dizziness postural [Unknown]
  - Dry skin [Unknown]
  - Nausea [Unknown]
  - Fatigue [Unknown]
